FAERS Safety Report 5846931-7 (Version None)
Quarter: 2008Q3

REPORT INFORMATION
  Report Type: 
  Country: None (occurrence: None)
  Receive Date: 20080815
  Receipt Date: 20080806
  Transmission Date: 20090109
  Serious: Yes (Hospitalization, Other)
  Sender: FDA-Public Use
  Company Number: US-PFIZER INC-2008010420

PATIENT
  Sex: Male
  Weight: 86.2 kg

DRUGS (3)
  1. CAVERJECT [Suspect]
     Indication: ERECTILE DYSFUNCTION
  2. CAVERJECT [Suspect]
  3. LIPITOR [Concomitant]
     Route: 048

REACTIONS (3)
  - ACCIDENTAL NEEDLE STICK [None]
  - DEVICE MALFUNCTION [None]
  - DRUG INEFFECTIVE [None]
